FAERS Safety Report 16747811 (Version 1)
Quarter: 2019Q3

REPORT INFORMATION
  Report Type: Spontaneous
  Country: SE (occurrence: SE)
  Receive Date: 20190827
  Receipt Date: 20190827
  Transmission Date: 20191005
  Serious: Yes (Hospitalization)
  Sender: FDA-Public Use
  Company Number: SE-MYLANLABS-2019M1079850

PATIENT
  Age: 89 Year
  Sex: Male

DRUGS (9)
  1. FURIX [Concomitant]
     Dosage: 1 TABLETT VID BEHOV, H?GST 2 TABLETTER PER DYGN UNK, PRN
     Route: 048
     Dates: start: 20170324
  2. ALVEDON [Concomitant]
     Active Substance: ACETAMINOPHEN
     Indication: PAIN
     Dosage: 1000 MILLIGRAM 2 TABLETTER 3-4 G?NGER DAGLIGEN
     Route: 048
     Dates: start: 20180730
  3. TROMBYL [Concomitant]
     Active Substance: ASPIRIN
     Dosage: 75 MILLIGRAM, QD
     Route: 048
     Dates: start: 20170325
  4. MEMANTINE. [Suspect]
     Active Substance: MEMANTINE
     Indication: DEMENTIA
     Dosage: UNK
     Dates: start: 20180822, end: 20181212
  5. RISPERDAL [Concomitant]
     Active Substance: RISPERIDONE
     Dosage: 2 0,5 TABLETT KL 8:00 OCH 1 TABLETT KL 20:00
     Route: 048
     Dates: start: 20181127
  6. CASODEX [Concomitant]
     Active Substance: BICALUTAMIDE
     Dosage: 150 MILLIGRAM, QD
     Route: 048
     Dates: start: 20170325
  7. METOPROLOL. [Concomitant]
     Active Substance: METOPROLOL
     Dosage: UNK
  8. MOVICOL [Concomitant]
     Active Substance: POLYETHYLENE GLYCOL 3350\POTASSIUM CHLORIDE\SODIUM BICARBONATE\SODIUM CHLORIDE
     Indication: CONSTIPATION
     Dosage: 1 DOSAGE FORM, QD
     Route: 048
     Dates: start: 20180822
  9. HEMINEVRIN                         /00027502/ [Concomitant]
     Active Substance: CLOMETHIAZOLE
     Dosage: UNK UNK, PRN 2 KAPSLAR VID BEHOV
     Route: 048
     Dates: start: 20181201

REACTIONS (1)
  - Syncope [Recovered/Resolved]

NARRATIVE: CASE EVENT DATE: 20181211
